FAERS Safety Report 5429059-X (Version None)
Quarter: 2007Q3

REPORT INFORMATION
  Report Type: 
  Country: None (occurrence: None)
  Receive Date: 20070829
  Receipt Date: 20070511
  Transmission Date: 20080115
  Serious: No
  Sender: FDA-Public Use
  Company Number: A0651025A

PATIENT
  Age: 47 Year
  Sex: Female

DRUGS (2)
  1. MALARONE [Suspect]
     Indication: LYME DISEASE
     Dosage: 1TAB UNKNOWN
     Route: 048
     Dates: start: 20061001, end: 20061001
  2. BICILLIN [Concomitant]

REACTIONS (2)
  - OESOPHAGEAL DISORDER [None]
  - RETCHING [None]
